FAERS Safety Report 21313266 (Version 2)
Quarter: 2022Q3

REPORT INFORMATION
  Report Type: Report from Study
  Country: JP (occurrence: JP)
  Receive Date: 20220909
  Receipt Date: 20220927
  Transmission Date: 20221027
  Serious: Yes (Hospitalization)
  Sender: FDA-Public Use
  Company Number: JP-OTSUKA-2022_041824

PATIENT
  Sex: Male
  Weight: 75 kg

DRUGS (9)
  1. ARIPIPRAZOLE [Suspect]
     Active Substance: ARIPIPRAZOLE
     Indication: Bipolar I disorder
     Dosage: 400 MG/SHOT
     Route: 030
     Dates: start: 20211210, end: 20211210
  2. ARIPIPRAZOLE [Suspect]
     Active Substance: ARIPIPRAZOLE
     Dosage: 400 MG/SHOT
     Route: 030
     Dates: start: 20210817, end: 20210817
  3. ARIPIPRAZOLE [Suspect]
     Active Substance: ARIPIPRAZOLE
     Dosage: 400 MG/SHOT
     Route: 030
     Dates: start: 20210915, end: 20210915
  4. ARIPIPRAZOLE [Suspect]
     Active Substance: ARIPIPRAZOLE
     Dosage: 400 MG/SHOT
     Route: 030
     Dates: start: 20211013, end: 20211013
  5. ARIPIPRAZOLE [Suspect]
     Active Substance: ARIPIPRAZOLE
     Dosage: 400 MG/SHOT
     Route: 030
     Dates: start: 20211112, end: 20211112
  6. ABILIFY [Concomitant]
     Active Substance: ARIPIPRAZOLE
     Indication: Bipolar I disorder
     Dosage: 12MG/DAY
     Route: 048
     Dates: start: 20210817, end: 20210828
  7. ABILIFY [Concomitant]
     Active Substance: ARIPIPRAZOLE
     Indication: Bipolar I disorder
     Dosage: 24MG/DAY
     Route: 048
     Dates: start: 20210615, end: 20210817
  8. LITHIUM CARBONATE [Concomitant]
     Active Substance: LITHIUM CARBONATE
     Indication: Bipolar I disorder
     Dosage: 400 MG/DAY
     Route: 048
     Dates: end: 20220603
  9. DAYVIGO [Concomitant]
     Active Substance: LEMBOREXANT
     Indication: Product used for unknown indication
     Dosage: 5 MG/DAY
     Route: 048

REACTIONS (3)
  - Status epilepticus [Recovered/Resolved]
  - Mania [Recovering/Resolving]
  - Mania [Recovering/Resolving]

NARRATIVE: CASE EVENT DATE: 20211222
